FAERS Safety Report 6096148-9 (Version None)
Quarter: 2009Q1

REPORT INFORMATION
  Report Type: 
  Country: None (occurrence: None)
  Receive Date: 20090227
  Receipt Date: 20080916
  Transmission Date: 20090719
  Serious: No
  Sender: FDA-Public Use
  Company Number: A0747759A

PATIENT
  Age: 60 Year
  Sex: Male

DRUGS (5)
  1. LAMICTAL [Suspect]
     Indication: PAIN
     Dosage: 400MG PER DAY
     Route: 048
     Dates: start: 20071001
  2. CYMBALTA [Concomitant]
  3. OXYCONTIN [Concomitant]
  4. OXY [Concomitant]
  5. LUNESTA [Concomitant]

REACTIONS (3)
  - RASH [None]
  - SKIN EXFOLIATION [None]
  - SWELLING FACE [None]
